FAERS Safety Report 11306087 (Version 1)
Quarter: 2015Q3

REPORT INFORMATION
  Report Type: Report from Study
  Country: CA (occurrence: CA)
  Receive Date: 20150723
  Receipt Date: 20150723
  Transmission Date: 20151125
  Serious: Yes (Other)
  Sender: FDA-Public Use
  Company Number: CA-AMGEN-CANSL2015072610

PATIENT
  Age: 72 Year
  Sex: Female

DRUGS (1)
  1. PROLIA [Suspect]
     Active Substance: DENOSUMAB
     Indication: PROPHYLAXIS
     Dosage: 60 MG, Q6MO
     Route: 058
     Dates: start: 20121218

REACTIONS (7)
  - Blood pressure increased [Unknown]
  - Diabetes mellitus [Unknown]
  - Angina pectoris [Unknown]
  - Malaise [Unknown]
  - Nausea [Unknown]
  - Back pain [Unknown]
  - Musculoskeletal chest pain [Unknown]

NARRATIVE: CASE EVENT DATE: 201506
